FAERS Safety Report 4324824-4 (Version None)
Quarter: 2004Q1

REPORT INFORMATION
  Report Type: 
  Country: None (occurrence: None)
  Receive Date: 20040323
  Receipt Date: 20040310
  Transmission Date: 20041129
  Serious: Yes (Hospitalization)
  Sender: FDA-Public Use
  Company Number: 2004017371

PATIENT
  Age: 52 Year
  Sex: Female

DRUGS (3)
  1. SERTRALINE (SERTRALINE) [Suspect]
     Indication: DEPRESSION
     Dosage: 50 MG (DAILY)
  2. NIMESULIDE (NIMESULIDE) [Suspect]
     Indication: PHARYNGOLARYNGEAL PAIN
     Dosage: 100 MG
  3. NORTRIPTYLINE HCL [Concomitant]

REACTIONS (11)
  - ABDOMINAL PAIN UPPER [None]
  - ANAEMIA [None]
  - DRUG INTERACTION [None]
  - ERYTHEMA [None]
  - GASTROINTESTINAL OEDEMA [None]
  - HYPERCHLORHYDRIA [None]
  - IMPAIRED GASTRIC EMPTYING [None]
  - OESOPHAGEAL ULCER [None]
  - PHARYNGOLARYNGEAL PAIN [None]
  - RETROPERITONEAL HAEMATOMA [None]
  - VOMITING [None]
